FAERS Safety Report 23684242 (Version 4)
Quarter: 2024Q4

REPORT INFORMATION
  Report Type: Report from Study
  Country: GB (occurrence: GB)
  Receive Date: 20240328
  Receipt Date: 20241022
  Transmission Date: 20250115
  Serious: Yes (Hospitalization, Other)
  Sender: TAKEDA
  Company Number: GB-TAKEDA-2024TUS029441

PATIENT
  Sex: Female

DRUGS (3)
  1. HUMAN IMMUNOGLOBULIN G [Suspect]
     Active Substance: HUMAN IMMUNOGLOBULIN G
     Indication: Immunodeficiency
     Dosage: UNK
     Route: 058
     Dates: start: 202312
  2. HUMAN IMMUNOGLOBULIN G [Suspect]
     Active Substance: HUMAN IMMUNOGLOBULIN G
     Dosage: UNK
     Route: 058
  3. HUMAN IMMUNOGLOBULIN G [Suspect]
     Active Substance: HUMAN IMMUNOGLOBULIN G
     Dosage: UNK
     Route: 058

REACTIONS (9)
  - Infection [Unknown]
  - Fall [Unknown]
  - Hip fracture [Unknown]
  - Peripheral swelling [Unknown]
  - Sputum discoloured [Unknown]
  - Infusion site mass [Recovering/Resolving]
  - Vomiting [Recovered/Resolved]
  - Fatigue [Unknown]
  - Nausea [Recovered/Resolved]
